FAERS Safety Report 5668673-3 (Version None)
Quarter: 2008Q1

REPORT INFORMATION
  Report Type: 
  Country: None (occurrence: None)
  Receive Date: 20080312
  Receipt Date: 20080307
  Transmission Date: 20080703
  Serious: Yes (Death, Life-Threatening, Hospitalization, Disabling)
  Sender: FDA-Public Use
  Company Number: OSCN-NO-0303S-0081

PATIENT
  Age: 55 Year
  Sex: Female

DRUGS (2)
  1. OMNISCAN [Suspect]
     Indication: RENAL CYST
     Dosage: 50 ML (0.23 MMOL/KG), SINGLEDOSE, I.V.
     Route: 042
     Dates: start: 20020108, end: 20020108
  2. OMNISCAN [Suspect]
     Indication: RENAL TRANSPLANT
     Dosage: 50 ML (0.23 MMOL/KG), SINGLEDOSE, I.V.
     Route: 042
     Dates: start: 20020108, end: 20020108

REACTIONS (14)
  - ALOPECIA [None]
  - AMNESIA [None]
  - DEPRESSED MOOD [None]
  - DIZZINESS [None]
  - HAEMODIALYSIS [None]
  - HEART RATE INCREASED [None]
  - NEPHROGENIC SYSTEMIC FIBROSIS [None]
  - PALPITATIONS [None]
  - PNEUMONIA [None]
  - PULMONARY EMBOLISM [None]
  - RENAL FAILURE [None]
  - VISUAL ACUITY REDUCED [None]
  - VOMITING [None]
  - WEIGHT DECREASED [None]
